FAERS Safety Report 9019812 (Version 1)
Quarter: 2013Q1

REPORT INFORMATION
  Report Type: Report from Study
  Country: JP (occurrence: JP)
  Receive Date: 20130118
  Receipt Date: 20130118
  Transmission Date: 20140127
  Serious: Yes (Other)
  Sender: FDA-Public Use
  Company Number: JP-VERTEX PHARMACEUTICALS INC.-2013-000725

PATIENT
  Age: 53 Year
  Sex: Male

DRUGS (13)
  1. VX-950 (TELAPREVIR) [Suspect]
     Indication: CHRONIC HEPATITIS C
     Dosage: 2250 MG, QD
     Route: 048
     Dates: start: 20120305, end: 20120506
  2. VX-950 (TELAPREVIR) [Suspect]
     Dosage: 1500 MG, QD
     Route: 048
     Dates: start: 20120507, end: 20120527
  3. RIBAVIRIN [Suspect]
     Indication: CHRONIC HEPATITIS C
     Dosage: 800 MG, QD
     Route: 048
     Dates: start: 20120305, end: 20120318
  4. RIBAVIRIN [Suspect]
     Dosage: 600 MG, QD
     Dates: start: 20120319, end: 20120325
  5. RIBAVIRIN [Suspect]
     Dosage: 400 MG, QD
     Route: 048
     Dates: start: 20120326, end: 20120422
  6. RIBAVIRIN [Suspect]
     Dosage: 200 MG, QD
     Route: 048
     Dates: start: 20120423, end: 20120819
  7. PEGINTERFERON ALFA-2B [Suspect]
     Indication: CHRONIC HEPATITIS C
     Dosage: 1.5 ?G/KG, QW
     Dates: start: 20120305, end: 20120311
  8. PEGINTERFERON ALFA-2B [Suspect]
     Dosage: 1.0 ?G/KG ,QW
     Route: 058
     Dates: start: 20120312, end: 20120409
  9. PEGINTERFERON ALFA-2B [Suspect]
     Dosage: .75 ?G/KG, QW
     Dates: start: 20120416, end: 20120507
  10. PEGINTERFERON ALFA-2B [Suspect]
     Dosage: .6 ?G/KG,QW
     Dates: start: 20120514, end: 20120702
  11. PEGINTERFERON ALFA-2B [Suspect]
     Dosage: .45 ?G/KG, QW
     Route: 058
     Dates: start: 20120709, end: 20120813
  12. TAKEPRON [Concomitant]
     Dosage: 15 MG, QD
     Route: 048
     Dates: start: 20120326
  13. LOXONIN [Concomitant]
     Dosage: 60 MG, QD
     Route: 048
     Dates: end: 20120813

REACTIONS (1)
  - Pancytopenia [Recovered/Resolved]
